FAERS Safety Report 16715739 (Version 1)
Quarter: 2019Q4

REPORT INFORMATION
  Report Type: Spontaneous
  Country: US (occurrence: US)
  Receive Date: 20190816
  Receipt Date: 20190816
  Transmission Date: 20200122
  Serious: Yes (Other)
  Sender: FDA-Public Use
  Company Number: None

PATIENT
  Age: 26 Year
  Sex: Female
  Weight: 58.5 kg

DRUGS (1)
  1. BACTRIM DS [Suspect]
     Active Substance: SULFAMETHOXAZOLE\TRIMETHOPRIM
     Indication: SOFT TISSUE INFECTION
     Dosage: ?          QUANTITY:1 TABLET(S);?
     Route: 048

REACTIONS (10)
  - Chills [None]
  - Headache [None]
  - Meningitis [None]
  - Refusal of treatment by patient [None]
  - Tachycardia [None]
  - Nuchal rigidity [None]
  - Vomiting [None]
  - Pyrexia [None]
  - Hypotension [None]
  - Ocular hyperaemia [None]

NARRATIVE: CASE EVENT DATE: 20160813
